FAERS Safety Report 26152831 (Version 1)
Quarter: 2025Q4

REPORT INFORMATION
  Report Type: Report from Study
  Country: US (occurrence: US)
  Receive Date: 20251214
  Receipt Date: 20251214
  Transmission Date: 20260118
  Serious: Yes (Hospitalization, Other)
  Sender: MERCK KGAA
  Company Number: US-Merck Healthcare KGaA-2025012058

PATIENT
  Age: 39 Year
  Sex: Male

DRUGS (1)
  1. REBIF [Suspect]
     Active Substance: INTERFERON BETA-1A
     Indication: Multiple sclerosis
     Dates: start: 20141002

REACTIONS (6)
  - Emotional distress [Unknown]
  - Self-injurious ideation [Unknown]
  - Homicidal ideation [Unknown]
  - Hand fracture [Recovering/Resolving]
  - Carpal tunnel syndrome [Unknown]
  - Arthropathy [Unknown]

NARRATIVE: CASE EVENT DATE: 20250101
